FAERS Safety Report 8166034-9 (Version None)
Quarter: 2012Q1

REPORT INFORMATION
  Report Type: 
  Country: None (occurrence: None)
  Receive Date: 20120227
  Receipt Date: 20110425
  Transmission Date: 20120608
  Serious: No
  Sender: FDA-Public Use
  Company Number: US-MYLANLABS-2011S1003655

PATIENT
  Age: 42 Year
  Sex: Female

DRUGS (6)
  1. WELLBUTRIN [Concomitant]
  2. SYNTHROID [Concomitant]
  3. LEXAPRO [Concomitant]
  4. AMNESTEEM [Suspect]
     Route: 048
     Dates: start: 20110101, end: 20110218
  5. CLARAVIS [Suspect]
     Indication: ACNE
     Route: 048
     Dates: start: 20010801, end: 20110101
  6. AMNESTEEM [Suspect]
     Indication: ACNE
     Route: 048
     Dates: start: 20100723, end: 20100801

REACTIONS (3)
  - MALAISE [None]
  - DYSPNOEA [None]
  - ANAEMIA [None]
